FAERS Safety Report 19452714 (Version 1)
Quarter: 2021Q2

REPORT INFORMATION
  Report Type: Spontaneous
  Country: US (occurrence: US)
  Receive Date: 20210623
  Receipt Date: 20210623
  Transmission Date: 20210717
  Serious: No
  Sender: FDA-Public Use
  Company Number: US-SA-2021SA197782

PATIENT
  Age: 17 Year
  Sex: Female

DRUGS (2)
  1. ENOXAPARIN SODIUM ? WINTHROP [Suspect]
     Active Substance: ENOXAPARIN SODIUM
     Route: 065
  2. B12 1000 SR [Concomitant]

REACTIONS (3)
  - Maternal exposure during pregnancy [Unknown]
  - Device difficult to use [Unknown]
  - Device issue [Unknown]
